FAERS Safety Report 12965840 (Version 1)
Quarter: 2016Q4

REPORT INFORMATION
  Report Type: Spontaneous
  Country: FR (occurrence: FR)
  Receive Date: 20161122
  Receipt Date: 20161122
  Transmission Date: 20170207
  Serious: Yes (Hospitalization)
  Sender: FDA-Public Use
  Company Number: FR-SA-2016SA211704

PATIENT
  Age: 58 Year
  Sex: Female

DRUGS (3)
  1. CO-APROVEL [Suspect]
     Active Substance: HYDROCHLOROTHIAZIDE\IRBESARTAN
     Indication: HYPERTENSION
     Route: 048
     Dates: start: 2010
  2. APRANAX [Suspect]
     Active Substance: NAPROXEN
     Indication: OSTEOARTHRITIS
     Route: 048
     Dates: start: 2006, end: 201610
  3. LUTERAN [Suspect]
     Active Substance: CHLORMADINONE ACETATE
     Indication: UTERINE LEIOMYOMA
     Route: 048
     Dates: start: 2014

REACTIONS (2)
  - Eosinophilic pneumonia [Recovered/Resolved]
  - Interstitial lung disease [Recovered/Resolved]

NARRATIVE: CASE EVENT DATE: 201610
